FAERS Safety Report 9767406 (Version 1)
Quarter: 2013Q4

REPORT INFORMATION
  Report Type: Spontaneous
  Country: US (occurrence: None)
  Receive Date: 20131213
  Receipt Date: 20131213
  Transmission Date: 20140711
  Serious: Yes (Death)
  Sender: FDA-Public Use
  Company Number: CPI 5370

PATIENT
  Age: 42 Year
  Sex: Female

DRUGS (7)
  1. LACTULOSE [Suspect]
     Indication: ACUTE HEPATIC FAILURE
     Dates: start: 2013
  2. LACTULOSE [Suspect]
     Indication: HEPATIC ENCEPHALOPATHY
     Dates: start: 2013
  3. HYPERSOMOLAR THERAPY [Concomitant]
  4. RIFAXIMIN [Concomitant]
  5. PROPOFOL [Concomitant]
  6. HYPOTHERMIA [Concomitant]
  7. PARALYTICS [Concomitant]

REACTIONS (1)
  - Intracranial pressure increased [None]
